FAERS Safety Report 14277030 (Version 1)
Quarter: 2017Q4

REPORT INFORMATION
  Report Type: Spontaneous
  Country: US (occurrence: US)
  Receive Date: 20171211
  Receipt Date: 20171211
  Transmission Date: 20180321
  Serious: Yes (Other)
  Sender: FDA-Public Use
  Company Number: US-LPDUSPRD-20171681

PATIENT
  Age: 55 Year
  Sex: Female

DRUGS (5)
  1. LIDOCAINE HCL INJECTION, USP (0625-25) [Concomitant]
     Active Substance: LIDOCAINE HYDROCHLORIDE
     Dosage: UNKNOWN
     Route: 065
  2. PAPAVERINE HCL INJECTION, USP (4002-25) [Suspect]
     Active Substance: PAPAVERINE HYDROCHLORIDE
     Dosage: 2 ML (3%)
     Route: 020
  3. ROCURONIUM [Concomitant]
     Active Substance: ROCURONIUM BROMIDE
     Dosage: UNKNOWN
     Route: 065
  4. MIDAZOLAM [Concomitant]
     Active Substance: MIDAZOLAM HYDROCHLORIDE
     Dosage: UNKNOWN
     Route: 065
  5. PROPOFOL. [Concomitant]
     Active Substance: PROPOFOL
     Dosage: UNKNOWN
     Route: 065

REACTIONS (8)
  - Mydriasis [Unknown]
  - Cerebrovascular accident [None]
  - Incorrect route of drug administration [Unknown]
  - Off label use [None]
  - Acidosis [None]
  - Vasospasm [None]
  - Toxicity to various agents [Unknown]
  - Post procedural complication [None]
